FAERS Safety Report 16976694 (Version 1)
Quarter: 2019Q4

REPORT INFORMATION
  Report Type: Report from Study
  Country: SE (occurrence: SE)
  Receive Date: 20191030
  Receipt Date: 20191030
  Transmission Date: 20200122
  Serious: Yes (Hospitalization)
  Sender: FDA-Public Use
  Company Number: SE-PFIZER INC-2019464106

PATIENT
  Age: 62 Year
  Sex: Female

DRUGS (21)
  1. PERTUZUMAB. [Suspect]
     Active Substance: PERTUZUMAB
     Dosage: 420 MG, EVERY 3 WEEKS
     Route: 042
     Dates: start: 20130116
  2. TAVEGYL [Concomitant]
     Active Substance: CLEMASTINE FUMARATE
     Dosage: 2 G, UNK
     Route: 065
     Dates: start: 20121227, end: 20121227
  3. FILGRASTIM [Concomitant]
     Active Substance: FILGRASTIM
     Dosage: UNK (48 U)
     Route: 065
     Dates: start: 20130209, end: 20130309
  4. FELODIPIN [Concomitant]
     Active Substance: FELODIPINE
     Dosage: 10 MG, UNK
     Route: 065
     Dates: start: 200912
  5. DOCETAXEL. [Suspect]
     Active Substance: DOCETAXEL
     Dosage: 150 MG, EVERY 3 WEEKS
     Route: 042
     Dates: start: 20130116
  6. OMEPRAZOLE. [Concomitant]
     Active Substance: OMEPRAZOLE
     Dosage: 1 DF, AS NEEDED
     Route: 065
     Dates: start: 20130109, end: 20130802
  7. DOCETAXEL. [Suspect]
     Active Substance: DOCETAXEL
     Indication: BREAST CANCER
     Dosage: 150 MG, EVERY 3 WEEKS
     Route: 042
     Dates: start: 20121113
  8. STESOLID [Concomitant]
     Active Substance: DIAZEPAM
     Dosage: UNK
     Route: 065
     Dates: start: 20131219
  9. PRIMPERAN [Concomitant]
     Active Substance: METOCLOPRAMIDE HYDROCHLORIDE
     Dosage: 1 DF, AS NEEDED
     Route: 065
     Dates: start: 20130108, end: 20130802
  10. TAVEGYL [Concomitant]
     Active Substance: CLEMASTINE FUMARATE
     Dosage: UNK
     Route: 065
     Dates: start: 20131202, end: 20131219
  11. TRASTUZUMAB. [Suspect]
     Active Substance: TRASTUZUMAB
     Dosage: 514 MG, EVERY 3 WEEKS
     Route: 042
     Dates: start: 20130116
  12. TRASTUZUMAB. [Suspect]
     Active Substance: TRASTUZUMAB
     Dosage: 8 MG/KG, SINGLE
     Route: 042
     Dates: start: 20121113
  13. TAVANIC [Concomitant]
     Active Substance: LEVOFLOXACIN
     Dosage: 500 MG, UNK
     Route: 065
     Dates: start: 20121121, end: 20121128
  14. BENZYLPENICILLIN [Concomitant]
     Active Substance: PENICILLIN G
     Dosage: 9 G, UNK
     Route: 065
     Dates: start: 20130218, end: 20130219
  15. METOPROLOL. [Concomitant]
     Active Substance: METOPROLOL
     Dosage: 25 MG, UNK
     Route: 065
     Dates: start: 20130704
  16. PERTUZUMAB. [Suspect]
     Active Substance: PERTUZUMAB
     Indication: BREAST CANCER
     Dosage: 840 MG, SINGLE
     Route: 042
     Dates: start: 20121113
  17. PARACETAMOL [Concomitant]
     Active Substance: ACETAMINOPHEN
     Dosage: 1 DF, AS NEEDED
     Route: 065
     Dates: start: 20121112
  18. BETAMETASON [Concomitant]
     Dosage: UNK
     Route: 065
     Dates: start: 20121111, end: 20130228
  19. TRASTUZUMAB. [Suspect]
     Active Substance: TRASTUZUMAB
     Indication: BREAST CANCER
     Dosage: 514 MG, EVERY 3 WEEKS
     Route: 042
  20. PERTUZUMAB. [Suspect]
     Active Substance: PERTUZUMAB
     Dosage: 420 MG, EVERY 3 WEEKS
     Route: 042
  21. ZOLPIDEM [Concomitant]
     Active Substance: ZOLPIDEM TARTRATE
     Dosage: 1 DF, AS NEEDED
     Route: 065
     Dates: start: 20130110

REACTIONS (4)
  - Diarrhoea [Recovered/Resolved]
  - Influenza [Recovered/Resolved]
  - Influenza like illness [Recovered/Resolved]
  - Febrile neutropenia [Recovered/Resolved]

NARRATIVE: CASE EVENT DATE: 20130107
